FAERS Safety Report 8847833 (Version 1)
Quarter: 2012Q4

REPORT INFORMATION
  Report Type: 
  Country: US (occurrence: US)
  Receive Date: 20121018
  Receipt Date: 20121018
  Transmission Date: 20130627
  Serious: No
  Sender: FDA-Public Use
  Company Number: US-ASTRAZENECA-2012SE76911

PATIENT
  Age: 85 Year
  Sex: Female

DRUGS (2)
  1. ATACAND [Suspect]
     Indication: BLOOD PRESSURE
     Route: 048
     Dates: start: 201209
  2. PROMETHAZINE [Concomitant]
     Indication: VERTIGO

REACTIONS (5)
  - Oropharyngeal pain [Unknown]
  - Increased upper airway secretion [Unknown]
  - Dry throat [Unknown]
  - Hypersomnia [Unknown]
  - Dry eye [Unknown]
